FAERS Safety Report 6847749-9 (Version None)
Quarter: 2010Q3

REPORT INFORMATION
  Report Type: 
  Country: None (occurrence: None)
  Receive Date: 20100714
  Receipt Date: 20100629
  Transmission Date: 20110219
  Serious: Yes (Other)
  Sender: FDA-Public Use
  Company Number: 2010AP001125

PATIENT
  Age: 51 Year
  Sex: Female

DRUGS (14)
  1. VALPROIC ACID SYRUP [Suspect]
     Indication: CONVULSION PROPHYLAXIS
     Dosage: 750 MG;QD
  2. BENZODIAZEPINE DERIVATIVES [Concomitant]
  3. DIAMORPHINE [Concomitant]
  4. LORAZEPAM [Concomitant]
  5. SUPRENORPHINE HYDROCHLORIDE [Concomitant]
  6. NALOXONE [Concomitant]
  7. METHYLPHENIDATE [Concomitant]
  8. FLUOXETINE HCL [Concomitant]
  9. ALPRAZOLAM [Concomitant]
  10. LEVOTHYROXINE [Concomitant]
  11. ATENOLOL [Concomitant]
  12. BUPROPION HYDROCHLORIDE [Concomitant]
  13. HYDROCODONE BITARTRATE [Concomitant]
  14. PARACETAMOL [Concomitant]

REACTIONS (3)
  - DIZZINESS [None]
  - HALLUCINATIONS, MIXED [None]
  - HYPERAMMONAEMIC ENCEPHALOPATHY [None]
